FAERS Safety Report 13068843 (Version 2)
Quarter: 2017Q1

REPORT INFORMATION
  Report Type: Report from Study
  Country: US (occurrence: US)
  Receive Date: 20161228
  Receipt Date: 20170109
  Transmission Date: 20170428
  Serious: Yes (Hospitalization)
  Sender: FDA-Public Use
  Company Number: US-BAYER-2016-222652

PATIENT
  Age: 73 Year
  Sex: Female

DRUGS (3)
  1. STIVARGA [Suspect]
     Active Substance: REGORAFENIB
     Indication: RECTAL CANCER
     Dosage: DAILY DOSE 120 MG, 21 DAYS ON AND 7 DAYS OFF
     Route: 048
     Dates: start: 20161110, end: 20161201
  2. STIVARGA [Suspect]
     Active Substance: REGORAFENIB
     Indication: RECTAL CANCER
     Dosage: 80 MG, QD
     Route: 048
     Dates: start: 20161219, end: 20161221
  3. STIVARGA [Suspect]
     Active Substance: REGORAFENIB
     Indication: RECTAL CANCER
     Dosage: 80 MG, QD
     Route: 048
     Dates: start: 20161228

REACTIONS (7)
  - Hyperkeratosis [Recovering/Resolving]
  - Pyrexia [None]
  - Insomnia [Not Recovered/Not Resolved]
  - Pain [Not Recovered/Not Resolved]
  - Pain in extremity [Recovering/Resolving]
  - Pain in extremity [Not Recovered/Not Resolved]
  - Hypoaesthesia [Recovering/Resolving]

NARRATIVE: CASE EVENT DATE: 20161111
